FAERS Safety Report 7427491-6 (Version None)
Quarter: 2011Q2

REPORT INFORMATION
  Report Type: 
  Country: None (occurrence: None)
  Receive Date: 20110420
  Receipt Date: 20110407
  Transmission Date: 20111010
  Serious: Yes (Life-Threatening, Hospitalization, Other)
  Sender: FDA-Public Use
  Company Number: US-ELI_LILLY_AND_COMPANY-US200909004688

PATIENT
  Sex: Female

DRUGS (9)
  1. CYANOCOBALAMIN [Concomitant]
     Dosage: 100 MG, QD
     Route: 048
  2. METOPROLOL [Concomitant]
     Dosage: 50 MG, QD
     Route: 048
  3. OMEPRAZOLE [Concomitant]
     Dosage: 20 UNK, UNK
     Route: 048
  4. ALBUTEROL [Concomitant]
     Dosage: UNK, (INHALE 2 PUFFS AS DIRECTED, EVERY 6 HRS
     Route: 055
  5. LEVOTHYROXINE SODIUM [Concomitant]
     Dosage: 100 UG, QD
     Route: 065
  6. FORTEO [Suspect]
     Dosage: 20 UG, DAILY (1/D)
     Route: 058
     Dates: end: 20110212
  7. FORTEO [Suspect]
     Indication: OSTEOPOROSIS
     Dosage: 20 UG, DAILY (1/D)
     Route: 058
     Dates: start: 20090301
  8. FORTEO [Suspect]
     Dosage: 20 UG, DAILY (1/D)
     Route: 058
  9. FERROUS                            /00023505/ [Concomitant]
     Route: 065

REACTIONS (17)
  - HOSPITALISATION [None]
  - NECK PAIN [None]
  - PAIN IN EXTREMITY [None]
  - MUSCULAR WEAKNESS [None]
  - CARDIAC ARREST [None]
  - CLOSTRIDIUM DIFFICILE COLITIS [None]
  - INJECTION SITE HAEMATOMA [None]
  - MITRAL VALVE INCOMPETENCE [None]
  - FLUID OVERLOAD [None]
  - CELLULITIS [None]
  - DEHYDRATION [None]
  - IMPAIRED HEALING [None]
  - LACERATION [None]
  - HEADACHE [None]
  - MUSCLE SPASMS [None]
  - CARDIAC FAILURE CONGESTIVE [None]
  - ARTHRALGIA [None]
